FAERS Safety Report 6956755-5 (Version None)
Quarter: 2010Q3

REPORT INFORMATION
  Report Type: 
  Country: None (occurrence: None)
  Receive Date: 20100826
  Receipt Date: 20100817
  Transmission Date: 20110219
  Serious: Yes (Congenital Anomaly)
  Sender: FDA-Public Use
  Company Number: AUR-APL-2010-01965

PATIENT

DRUGS (4)
  1. CITALOPRAM HYDROBROMIDE [Suspect]
     Indication: ANXIETY
     Dosage: 20MG, TRANSPLACENTAL
     Route: 064
  2. BETAMETHASONE VALERATE [Suspect]
     Indication: DERMATITIS
     Dosage: 100ML, TRANSPLACENTAL
     Route: 064
  3. DIAZEPAM [Suspect]
     Indication: ANXIETY
     Dosage: 5 MG, TRANSPLACENTAL
     Route: 064
  4. TRAZODONE HYDROCHLORIDE [Suspect]
     Indication: ANXIETY
     Dosage: 100MG, TRANSPLACENTAL
     Route: 064

REACTIONS (2)
  - CLEFT PALATE [None]
  - MATERNAL DRUGS AFFECTING FOETUS [None]
